FAERS Safety Report 4466344-2 (Version None)
Quarter: 2004Q4

REPORT INFORMATION
  Report Type: 
  Country: None (occurrence: None)
  Receive Date: 20041005
  Receipt Date: 20040929
  Transmission Date: 20050328
  Serious: Yes (Hospitalization)
  Sender: FDA-Public Use
  Company Number: FR-GLAXOSMITHKLINE-B0346621A

PATIENT
  Age: 74 Year
  Sex: Female
  Weight: 59 kg

DRUGS (10)
  1. CLAMOXYL [Suspect]
     Indication: PERITONITIS
     Route: 048
     Dates: start: 20040820, end: 20040831
  2. NOVONORM [Suspect]
     Indication: DIABETES MELLITUS
     Dosage: 1MG THREE TIMES PER DAY
     Route: 048
     Dates: start: 20040823, end: 20040909
  3. LASILIX 40 MG [Suspect]
     Dosage: 1UNIT TWICE PER DAY
     Route: 048
     Dates: end: 20040910
  4. UN ALPHA [Suspect]
     Dosage: .25MCG PER DAY
     Route: 048
     Dates: end: 20040909
  5. DUPHALAC [Suspect]
     Route: 048
     Dates: start: 20040827
  6. VANCOMYCIN [Suspect]
     Dosage: 1G PER DAY
     Route: 042
     Dates: start: 20040819, end: 20040820
  7. ZYLORIC [Suspect]
     Dosage: 1UNIT PER DAY
     Route: 048
     Dates: end: 20040909
  8. RENAGEL [Suspect]
     Dosage: 3UNIT PER DAY
     Route: 048
     Dates: end: 20040909
  9. CHLORAMINOPHENE [Suspect]
     Dosage: 4UNIT PER DAY
     Route: 048
  10. APROVEL [Concomitant]
     Dosage: 1UNIT PER DAY
     Route: 048
     Dates: end: 20040816

REACTIONS (6)
  - DIABETES MELLITUS INADEQUATE CONTROL [None]
  - PERITONITIS BACTERIAL [None]
  - PRURITUS [None]
  - PYREXIA [None]
  - RASH ERYTHEMATOUS [None]
  - RASH PRURITIC [None]
